FAERS Safety Report 10036469 (Version 1)
Quarter: 2014Q1

REPORT INFORMATION
  Report Type: Spontaneous
  Country: GB (occurrence: GB)
  Receive Date: 20140326
  Receipt Date: 20140326
  Transmission Date: 20141002
  Serious: Yes (Death, Other)
  Sender: FDA-Public Use
  Company Number: PHHY2014GB035655

PATIENT
  Age: 72 Year
  Sex: Male
  Weight: 74 kg

DRUGS (15)
  1. PARACETAMOL [Suspect]
     Indication: GOUT
     Dosage: 16 GRAMS RECEIVED. 1 GRAM 6-HOURLY BY MOUTH
     Route: 048
     Dates: start: 20130822, end: 20130828
  2. TAZOCIN [Suspect]
     Indication: URINARY TRACT INFECTION
     Dosage: 10 DOSES GIVEN. 4.5 G 8-HOURLY
     Route: 042
     Dates: start: 20130822, end: 20130828
  3. ALLOPURINOL [Concomitant]
     Indication: GOUT
  4. BISOPROLOL [Concomitant]
  5. CANDESARTAN [Concomitant]
  6. COLCHICINE [Concomitant]
     Indication: GOUT
  7. DIGOXIN [Concomitant]
  8. FINASTERIDE [Concomitant]
  9. FUROSEMIDE [Concomitant]
  10. PRAVASTATIN [Concomitant]
  11. SPIRONOLACTONE [Concomitant]
  12. TAMSULOSIN [Concomitant]
  13. WARFARIN [Concomitant]
     Indication: ANTICOAGULANT THERAPY
  14. TRIMETHOPRIM [Concomitant]
     Indication: URINARY TRACT INFECTION
  15. IBUPROFEN [Concomitant]
     Indication: GOUT
     Dates: start: 201308, end: 201308

REACTIONS (3)
  - Hepatitis acute [Fatal]
  - Cardiac arrest [Not Recovered/Not Resolved]
  - Convulsion [Not Recovered/Not Resolved]
